FAERS Safety Report 25537562 (Version 3)
Quarter: 2025Q3

REPORT INFORMATION
  Report Type: Spontaneous
  Country: US (occurrence: US)
  Receive Date: 20250710
  Receipt Date: 20250807
  Transmission Date: 20251021
  Serious: No
  Sender: BIOGEN
  Company Number: US-BIOGEN-2025BI01316574

PATIENT
  Sex: Female

DRUGS (4)
  1. AVONEX [Suspect]
     Active Substance: INTERFERON BETA-1A
     Indication: Multiple sclerosis
     Dosage: STOP DATE ALSO REPORTED AS JUN-2025.
     Route: 050
     Dates: end: 20250612
  2. AVONEX [Suspect]
     Active Substance: INTERFERON BETA-1A
     Route: 050
     Dates: start: 20250710
  3. AVONEX [Suspect]
     Active Substance: INTERFERON BETA-1A
  4. AVONEX [Suspect]
     Active Substance: INTERFERON BETA-1A

REACTIONS (2)
  - Multiple sclerosis [Not Recovered/Not Resolved]
  - Fatigue [Recovered/Resolved]
